FAERS Safety Report 7484945-4 (Version None)
Quarter: 2011Q2

REPORT INFORMATION
  Report Type: 
  Country: None (occurrence: None)
  Receive Date: 20110517
  Receipt Date: 20100421
  Transmission Date: 20111010
  Serious: No
  Sender: FDA-Public Use
  Company Number: US-NOVEN-ALL1-2010-02376

PATIENT

DRUGS (7)
  1. FOCALIN [Concomitant]
     Dosage: 40 MG, 2X/DAY:BID (MONDAY-FRIDAY ONLY)
     Route: 048
     Dates: start: 20100101, end: 20100101
  2. TETRACYCLINE [Concomitant]
     Dosage: UNK MG, 1X/DAY:QD
     Route: 048
     Dates: start: 20090101
  3. PROZAC                             /00724401/ [Concomitant]
     Dosage: 30 MG, 1X/DAY:QD (1 AND 1/2 20 MG. TABLETS DAILY)
     Route: 048
     Dates: start: 20090101
  4. DEPAKOTE [Concomitant]
     Dosage: 750 MG, 1X/DAY:QD
     Route: 048
     Dates: start: 20090101
  5. DAYTRANA [Suspect]
     Dosage: 20 MG, 1X/DAY:QD (WEEKENDS ONLY)
     Route: 062
     Dates: start: 20100101, end: 20100101
  6. FOCALIN [Concomitant]
     Dosage: 40 MG, 2X/DAY:BID
     Route: 048
     Dates: start: 20090101, end: 20100101
  7. ABILIFY [Concomitant]
     Dosage: 10 MG, 1X/DAY:QD
     Route: 048
     Dates: start: 20090101

REACTIONS (5)
  - HYPERSOMNIA [None]
  - SLUGGISHNESS [None]
  - OFF LABEL USE [None]
  - APPLICATION SITE IRRITATION [None]
  - DRUG INEFFECTIVE [None]
